FAERS Safety Report 5376456-7 (Version None)
Quarter: 2007Q3

REPORT INFORMATION
  Report Type: 
  Country: None (occurrence: None)
  Receive Date: 20070702
  Receipt Date: 20070622
  Transmission Date: 20080115
  Serious: Yes (Disabling)
  Sender: FDA-Public Use
  Company Number: FR-PFIZER INC-2007052428

PATIENT
  Age: 50 Year
  Sex: Female

DRUGS (11)
  1. LYRICA [Suspect]
     Route: 048
     Dates: start: 20061101, end: 20070503
  2. GLIMEPIRIDE [Concomitant]
  3. CLONAZEPAM [Concomitant]
  4. METFORMIN HCL [Concomitant]
  5. LEVETIRACETAM [Concomitant]
  6. VALPROIC ACID [Concomitant]
  7. LERCANIDIPINE [Concomitant]
  8. OSYROL-LASIX [Concomitant]
  9. ROSUVASTATIN [Concomitant]
  10. ALL OTHER THERAPEUTIC PRODUCTS [Concomitant]
  11. INSULIN [Concomitant]

REACTIONS (2)
  - TUNNEL VISION [None]
  - VISUAL ACUITY REDUCED [None]
